FAERS Safety Report 9407063 (Version 1)
Quarter: 2013Q3

REPORT INFORMATION
  Report Type: Spontaneous
  Country: IT (occurrence: IT)
  Receive Date: 20130718
  Receipt Date: 20130718
  Transmission Date: 20140515
  Serious: Yes (Hospitalization)
  Sender: FDA-Public Use
  Company Number: IT-COVIDIEN/TYCO HEALTHCARE/MALLINCKRODT-T201303735

PATIENT
  Age: 87 Year
  Sex: Male

DRUGS (10)
  1. EXALGO EXTENDED RELEASE [Suspect]
     Indication: PAIN
     Dosage: 4 MG. 1 IN 1 DAY
     Route: 048
     Dates: start: 20130601, end: 20130601
  2. DUROGESIC /00174601/ [Suspect]
     Indication: PAIN
     Dosage: UNK
     Route: 062
     Dates: start: 20130601, end: 20130604
  3. CONTRAMAL [Concomitant]
     Dosage: UNK
     Route: 048
  4. DELTACORTENE [Concomitant]
     Indication: PRODUCT USED FOR UNKNOWN INDICATION
     Dosage: UNK
     Route: 048
  5. LANOXIN [Concomitant]
     Dosage: 0.0625 MG. 1 IN
     Route: 048
  6. CARDIOASPIRIN [Concomitant]
     Dosage: 100 MG, 1 IN
     Route: 048
  7. PORTEX [Concomitant]
     Indication: PRODUCT USED FOR UNKNOWN INDICATION
     Dosage: UNK
     Route: 048
  8. LIXIDOL [Concomitant]
     Indication: PRODUCT USED FOR UNKNOWN INDICATION
     Route: 048
  9. ENANTONE                           /00726901/ [Concomitant]
     Indication: PRODUCT USED FOR UNKNOWN INDICATION
     Dosage: UNK
  10. INSULIN [Concomitant]
     Indication: PRODUCT USED FOR UNKNOWN INDICATION
     Dosage: UNK

REACTIONS (4)
  - Respiratory failure [Unknown]
  - Metastases to bone [Unknown]
  - Metastases to kidney [Unknown]
  - Neoplasm malignant [Unknown]
